FAERS Safety Report 9206059 (Version 2)
Quarter: 2013Q2

REPORT INFORMATION
  Report Type: Spontaneous
  Country: US (occurrence: None)
  Receive Date: 20120731
  Receipt Date: 20121130
  Transmission Date: 20140414
  Serious: Yes (Other)
  Sender: FDA-Public Use
  Company Number: US201205005653

PATIENT
  Age: 50 Year
  Sex: Female
  Weight: 125.2 kg

DRUGS (8)
  1. BYDUREON [Suspect]
     Indication: TYPE 2 DIABETES MELLITUS
     Route: 058
     Dates: start: 20120512, end: 20120512
  2. METFORMIN (METFORMIN) [Concomitant]
  3. ALBUTEROL (SALBUTAMOL) [Concomitant]
  4. CALCIUM CARBONATE/VITAMIN D3 (CALCIUM CARBONATE, COLECALCIFEROL) [Concomitant]
  5. VITAMIN B12 (CYANOCOBALAMIN) [Concomitant]
  6. IBUPROFEN (IBUPROFEN) [Concomitant]
  7. MULTIVITAMIN (VITAMINS NOS) [Concomitant]
  8. VITAMIN A + D/(ERGOCALCIFEROL, RETINOL) [Concomitant]

REACTIONS (2)
  - Anaphylactic reaction [None]
  - Blood glucose increased [None]
